FAERS Safety Report 6908222-2 (Version None)
Quarter: 2010Q3

REPORT INFORMATION
  Report Type: 
  Country: None (occurrence: None)
  Receive Date: 20100805
  Receipt Date: 20100729
  Transmission Date: 20110219
  Serious: Yes (Death)
  Sender: FDA-Public Use
  Company Number: JP-ROCHE-690715

PATIENT
  Sex: Female
  Weight: 35 kg

DRUGS (21)
  1. TOCILIZUMAB [Suspect]
     Indication: RHEUMATOID ARTHRITIS
     Route: 041
     Dates: start: 20081224, end: 20081224
  2. TOCILIZUMAB [Suspect]
     Dosage: DOSE FORM: INJECTION
     Route: 041
     Dates: start: 20090109, end: 20090109
  3. TOCILIZUMAB [Suspect]
     Dosage: DOSE FORM: INJECTION
     Route: 041
     Dates: start: 20090217, end: 20090217
  4. TOCILIZUMAB [Suspect]
     Dosage: DOSE FORM: INJECTION
     Route: 041
     Dates: start: 20090317, end: 20090317
  5. TOCILIZUMAB [Suspect]
     Dosage: DOSE FORM: INJECTION
     Route: 041
     Dates: start: 20090414, end: 20090414
  6. TOCILIZUMAB [Suspect]
     Dosage: DOSE FORM: INJECTION
     Route: 041
     Dates: start: 20090512, end: 20090512
  7. TOCILIZUMAB [Suspect]
     Dosage: DOSE FORM: INJECTION
     Route: 041
     Dates: start: 20090609, end: 20090609
  8. TOCILIZUMAB [Suspect]
     Dosage: DOSE FORM: INJECTION
     Route: 041
     Dates: start: 20090707, end: 20090707
  9. TOCILIZUMAB [Suspect]
     Dosage: DOSE FORM: INJECTION
     Route: 041
     Dates: start: 20090804, end: 20090804
  10. TOCILIZUMAB [Suspect]
     Dosage: DOSE FORM: INJECTION
     Route: 041
     Dates: start: 20090915, end: 20090915
  11. TOCILIZUMAB [Suspect]
     Route: 041
     Dates: start: 20091013, end: 20091013
  12. TOCILIZUMAB [Suspect]
     Route: 041
     Dates: start: 20091201, end: 20091201
  13. TOCILIZUMAB [Suspect]
     Route: 041
     Dates: start: 20100105, end: 20100105
  14. TOCILIZUMAB [Suspect]
     Route: 041
     Dates: start: 20100202, end: 20100202
  15. METHOTREXATE [Concomitant]
     Dosage: DOSE FORM: PERORAL AGENT
     Route: 048
  16. METHOTREXATE [Concomitant]
     Route: 048
  17. RIMATIL [Concomitant]
     Route: 048
     Dates: end: 20090414
  18. AZULFIDINE [Concomitant]
     Dosage: DOSE FORM: ENTERIC COATING DRUG
     Route: 048
     Dates: end: 20090317
  19. PREDNISOLONE [Concomitant]
     Dosage: DOSE FORM: PERORAL AGENT
     Route: 048
  20. PREDNISOLONE [Concomitant]
     Route: 048
  21. FOLIAMIN [Concomitant]

REACTIONS (1)
  - AORTIC RUPTURE [None]
